FAERS Safety Report 8440068-9 (Version None)
Quarter: 2012Q2

REPORT INFORMATION
  Report Type: 
  Country: None (occurrence: None)
  Receive Date: 20120615
  Receipt Date: 20120605
  Transmission Date: 20120825
  Serious: Yes (Other)
  Sender: FDA-Public Use
  Company Number: US-ABBOTT-12P-163-0938230-00

PATIENT
  Sex: Male
  Weight: 112.59 kg

DRUGS (6)
  1. HUMIRA [Suspect]
     Indication: CROHN'S DISEASE
     Dosage: LOADING DOSE
     Dates: start: 20120521, end: 20120521
  2. PRILOSEC [Concomitant]
     Indication: GASTROOESOPHAGEAL REFLUX DISEASE
     Dosage: DAILY
  3. ASPIRIN [Concomitant]
     Indication: PROPHYLAXIS
  4. PROBIOTICS [Concomitant]
     Indication: CROHN'S DISEASE
  5. XANAX [Concomitant]
     Indication: PANIC ATTACK
  6. MULTI-VITAMIN [Concomitant]
     Indication: SUPPLEMENTATION THERAPY
     Dosage: 1 TABLET DAILY

REACTIONS (19)
  - TREMOR [None]
  - OROPHARYNGEAL PAIN [None]
  - ASTHENIA [None]
  - FEELING JITTERY [None]
  - NASOPHARYNGITIS [None]
  - FATIGUE [None]
  - THROAT IRRITATION [None]
  - HOUSE DUST ALLERGY [None]
  - NERVOUSNESS [None]
  - PANIC ATTACK [None]
  - MYOCARDIAL INFARCTION [None]
  - THINKING ABNORMAL [None]
  - HYPERSENSITIVITY [None]
  - MIDDLE INSOMNIA [None]
  - SEASONAL ALLERGY [None]
  - HUNGER [None]
  - ANXIETY [None]
  - DIZZINESS [None]
  - HEADACHE [None]
